FAERS Safety Report 10397093 (Version 3)
Quarter: 2014Q4

REPORT INFORMATION
  Report Type: Spontaneous
  Country: US (occurrence: US)
  Receive Date: 20140820
  Receipt Date: 20141017
  Transmission Date: 20150528
  Serious: No
  Sender: FDA-Public Use
  Company Number: US-PFIZER INC-2014229206

PATIENT
  Age: 19 Year
  Sex: Male

DRUGS (1)
  1. CLINDAMYCIN PHOSPHATE. [Suspect]
     Active Substance: CLINDAMYCIN PHOSPHATE
     Indication: ACNE
     Dosage: UNK, DAILY (1% GEL APPLY IN AM)

REACTIONS (1)
  - Drug ineffective [Unknown]
